FAERS Safety Report 9416190 (Version 1)
Quarter: 2013Q3

REPORT INFORMATION
  Report Type: Spontaneous
  Country: KR (occurrence: None)
  Receive Date: 20130718
  Receipt Date: 20130718
  Transmission Date: 20140515
  Serious: Yes (Hospitalization)
  Sender: FDA-Public Use
  Company Number: BACL20130009

PATIENT
  Age: 71 Year
  Sex: Male

DRUGS (1)
  1. BACLOFEN [Suspect]
     Indication: PRODUCT USED FOR UNKNOWN INDICATION
     Dosage: 10 MG 3 IN 1 D.
     Route: 048

REACTIONS (1)
  - Toxic encephalopathy [None]
